FAERS Safety Report 13880659 (Version 1)
Quarter: 2017Q3

REPORT INFORMATION
  Report Type: Spontaneous
  Country: IT (occurrence: IT)
  Receive Date: 20170818
  Receipt Date: 20170818
  Transmission Date: 20171127
  Serious: Yes (Other)
  Sender: FDA-Public Use
  Company Number: IT-BAYER-2017-152569

PATIENT
  Age: 51 Year
  Sex: Female

DRUGS (1)
  1. CIPROXIN 250 MG [Suspect]
     Active Substance: CIPROFLOXACIN
     Indication: CYSTITIS HAEMORRHAGIC
     Dosage: 250 MG, ONCE
     Route: 048
     Dates: start: 20170806, end: 20170806

REACTIONS (4)
  - Asthenia [Unknown]
  - Nausea [Unknown]
  - Presyncope [Unknown]
  - Paraesthesia [Unknown]

NARRATIVE: CASE EVENT DATE: 20170806
